FAERS Safety Report 21654782 (Version 2)
Quarter: 2023Q1

REPORT INFORMATION
  Report Type: Report from Study
  Country: US (occurrence: US)
  Receive Date: 20221129
  Receipt Date: 20230216
  Transmission Date: 20230417
  Serious: No
  Sender: FDA-Public Use
  Company Number: US-ABBVIE-4184417

PATIENT
  Sex: Female

DRUGS (3)
  1. HUMIRA [Suspect]
     Active Substance: ADALIMUMAB
     Indication: Product used for unknown indication
     Dosage: CITRATE FREE
     Route: 058
  2. HUMIRA [Suspect]
     Active Substance: ADALIMUMAB
     Dosage: CITRATE FREE; ECZEMA ON STOMACH, ELBOW AND AROUND THE EYES STARTED IN APR 2022
     Route: 058
     Dates: start: 20220418
  3. COVID-19 vaccine [Concomitant]
     Indication: COVID-19 immunisation
     Dosage: ONE TIME ONCE
     Route: 030

REACTIONS (7)
  - Condition aggravated [Unknown]
  - Hidradenitis [Unknown]
  - Ulcer [Unknown]
  - Visual impairment [Unknown]
  - Periorbital swelling [Unknown]
  - Dry eye [Unknown]
  - Eczema [Unknown]
